FAERS Safety Report 5556868-9 (Version None)
Quarter: 2007Q4

REPORT INFORMATION
  Report Type: 
  Country: None (occurrence: None)
  Receive Date: 20071211
  Receipt Date: 20071211
  Transmission Date: 20080405
  Serious: No
  Sender: FDA-Public Use
  Company Number: None

PATIENT
  Sex: Male
  Weight: 97.5234 kg

DRUGS (1)
  1. CHANTIX [Suspect]

REACTIONS (3)
  - AFFECTIVE DISORDER [None]
  - AGGRESSION [None]
  - DEPRESSION [None]
